FAERS Safety Report 4955087-4 (Version None)
Quarter: 2006Q1

REPORT INFORMATION
  Report Type: 
  Country: None (occurrence: None)
  Receive Date: 20060322
  Receipt Date: 20060310
  Transmission Date: 20060701
  Serious: Yes (Death)
  Sender: FDA-Public Use
  Company Number: US200603003463

PATIENT
  Sex: 0

DRUGS (1)
  1. XIGRIS [Suspect]
     Dosage: TRANSPLACENTAL
     Route: 064
     Dates: start: 20060101

REACTIONS (2)
  - DRUG EXPOSURE DURING PREGNANCY [None]
  - INTRA-UTERINE DEATH [None]
